FAERS Safety Report 18330135 (Version 1)
Quarter: 2020Q3

REPORT INFORMATION
  Report Type: Report from Study
  Country: AU (occurrence: AU)
  Receive Date: 20200930
  Receipt Date: 20200930
  Transmission Date: 20201103
  Serious: Yes (Death, Other)
  Sender: FDA-Public Use
  Company Number: AU-CELGENEUS-AUS-20180801512

PATIENT

DRUGS (1)
  1. ABRAXANE [Suspect]
     Active Substance: PACLITAXEL
     Indication: ADENOCARCINOMA PANCREAS
     Dosage: 100 MG/M2 WEEKLY
     Route: 041

REACTIONS (4)
  - Neutropenia [Unknown]
  - Enterocolitis [Fatal]
  - Febrile neutropenia [Fatal]
  - Diarrhoea [Unknown]
